FAERS Safety Report 18338239 (Version 1)
Quarter: 2020Q4

REPORT INFORMATION
  Report Type: Spontaneous
  Country: FR (occurrence: FR)
  Receive Date: 20201002
  Receipt Date: 20201002
  Transmission Date: 20210113
  Serious: Yes (Life-Threatening)
  Sender: FDA-Public Use
  Company Number: FR-TEVA-2020-FR-1832792

PATIENT
  Age: 54 Year
  Sex: Female

DRUGS (4)
  1. CHOLURSO 500 MG, COMPRIME PELLICULE [Suspect]
     Active Substance: URSODIOL
     Indication: CHOLESTASIS
     Dosage: UNIT DOSE 1000MG
     Route: 048
     Dates: end: 20200819
  2. MYCOPHENOLATE MOFETIL. [Suspect]
     Active Substance: MYCOPHENOLATE MOFETIL
     Indication: LIVER TRANSPLANT
     Route: 048
     Dates: start: 20200530, end: 20200819
  3. TACROLIMUS MONOHYDRATE [Suspect]
     Active Substance: TACROLIMUS
     Indication: LIVER TRANSPLANT
     Dosage: UNIT DOSE 8MG
     Route: 048
     Dates: start: 20200530, end: 20200819
  4. PREDNISOLONE. [Concomitant]
     Active Substance: PREDNISOLONE

REACTIONS (5)
  - Anaemia [Recovering/Resolving]
  - Acute kidney injury [Recovered/Resolved]
  - Vomiting [Recovered/Resolved]
  - Agranulocytosis [Recovered/Resolved]
  - Pyelonephritis [Recovering/Resolving]

NARRATIVE: CASE EVENT DATE: 20200812
